FAERS Safety Report 8215668 (Version 8)
Quarter: 2016Q2

REPORT INFORMATION
  Report Type: Spontaneous
  Country: US (occurrence: US)
  Receive Date: 20111031
  Receipt Date: 20160415
  Transmission Date: 20160815
  Serious: Yes (Hospitalization, Congenital Anomaly, Other)
  Sender: FDA-Public Use
  Company Number: US-GLAXOSMITHKLINE-A0951257A

PATIENT
  Age: 0 Day
  Sex: Male
  Weight: 4 kg

DRUGS (6)
  1. PAXIL [Suspect]
     Active Substance: PAROXETINE HYDROCHLORIDE
     Indication: BACK PAIN
  2. PAXIL [Suspect]
     Active Substance: PAROXETINE HYDROCHLORIDE
     Indication: DEPRESSION
     Route: 064
     Dates: start: 2003, end: 2004
  3. PRENATAL VITAMINS [Concomitant]
     Active Substance: VITAMINS
     Route: 064
  4. IRON SUPPLEMENTS [Concomitant]
     Active Substance: IRON
     Route: 064
  5. ZITHROMAX [Concomitant]
     Active Substance: AZITHROMYCIN DIHYDRATE
     Indication: CHLAMYDIAL INFECTION
     Dates: start: 200308, end: 200308
  6. PAXIL CR [Suspect]
     Active Substance: PAROXETINE HYDROCHLORIDE
     Indication: DEPRESSION
     Route: 064
     Dates: start: 20030506

REACTIONS (7)
  - Congenital cardiovascular anomaly [Unknown]
  - Foetal exposure during pregnancy [Unknown]
  - Haemothorax [Unknown]
  - Pleural effusion [Unknown]
  - Respiratory failure [Unknown]
  - Attention deficit/hyperactivity disorder [Unknown]
  - Fallot^s tetralogy [Unknown]

NARRATIVE: CASE EVENT DATE: 20040207
